FAERS Safety Report 9985630 (Version 1)
Quarter: 2014Q1

REPORT INFORMATION
  Report Type: Report from Study
  Country: JP (occurrence: JP)
  Receive Date: 20140307
  Receipt Date: 20140307
  Transmission Date: 20141002
  Serious: Yes (Hospitalization)
  Sender: FDA-Public Use
  Company Number: JP-ABBVIE-14P-087-1209762-00

PATIENT
  Age: 79 Year
  Sex: Male
  Weight: 55.8 kg

DRUGS (5)
  1. LIPACREON [Suspect]
     Indication: PANCREATIC INSUFFICIENCY
     Dosage: DAILY DOSE: 1800 MILLIGRAM, SACHET
     Route: 048
     Dates: start: 20130520
  2. BISOPROLOL FUMARATE [Concomitant]
     Indication: DISEASE COMPLICATION
     Route: 048
  3. ASPIRIN [Concomitant]
     Indication: DISEASE COMPLICATION
     Route: 048
  4. PRAVASTATIN SODIUM [Concomitant]
     Indication: DISEASE COMPLICATION
     Route: 048
  5. CANDESARTAN CILEXETIL [Concomitant]
     Indication: DISEASE COMPLICATION
     Route: 048

REACTIONS (1)
  - Coronary artery disease [Recovering/Resolving]
